FAERS Safety Report 19455658 (Version 1)
Quarter: 2021Q2

REPORT INFORMATION
  Report Type: Spontaneous
  Country: US (occurrence: US)
  Receive Date: 20210623
  Receipt Date: 20210623
  Transmission Date: 20210717
  Serious: No
  Sender: FDA-Public Use
  Company Number: None

PATIENT

DRUGS (2)
  1. TOPIRAMATE. [Suspect]
     Active Substance: TOPIRAMATE
     Indication: BIPOLAR I DISORDER
     Dates: start: 20210607, end: 20210622
  2. TOPIRAMATE. [Suspect]
     Active Substance: TOPIRAMATE
     Indication: ANXIETY
     Dates: start: 20210607, end: 20210622

REACTIONS (4)
  - Hypoaesthesia [None]
  - Throat irritation [None]
  - Paraesthesia [None]
  - Adverse drug reaction [None]

NARRATIVE: CASE EVENT DATE: 20210622
